FAERS Safety Report 20876173 (Version 1)
Quarter: 2022Q2

REPORT INFORMATION
  Report Type: Spontaneous
  Country: US (occurrence: US)
  Receive Date: 20220526
  Receipt Date: 20220526
  Transmission Date: 20220720
  Serious: Yes (Hospitalization)
  Sender: FDA-Public Use
  Company Number: US-SENTYNL214018-2022000005

PATIENT
  Age: 11 Year
  Sex: Male

DRUGS (1)
  1. NULIBRY [Suspect]
     Active Substance: FOSDENOPTERIN HYDROBROMIDE
     Indication: Molybdenum cofactor deficiency
     Route: 042
     Dates: start: 20220101

REACTIONS (1)
  - Bacteraemia [Recovered/Resolved]

NARRATIVE: CASE EVENT DATE: 20220501
